FAERS Safety Report 21571555 (Version 6)
Quarter: 2023Q4

REPORT INFORMATION
  Report Type: Report from Study
  Country: US (occurrence: US)
  Receive Date: 20221109
  Receipt Date: 20231107
  Transmission Date: 20240110
  Serious: Yes (Other)
  Sender: FDA-Public Use
  Company Number: US-ARGENX-2022-ARGX-US002212

PATIENT

DRUGS (5)
  1. VYVGART [Suspect]
     Active Substance: EFGARTIGIMOD ALFA-FCAB
     Indication: Myasthenia gravis
     Dosage: 800 MG, 1/WEEK
     Route: 042
     Dates: start: 20220923
  2. VYVGART [Suspect]
     Active Substance: EFGARTIGIMOD ALFA-FCAB
     Dosage: UNK
     Route: 042
     Dates: start: 20221005, end: 20221019
  3. VYVGART [Suspect]
     Active Substance: EFGARTIGIMOD ALFA-FCAB
     Dosage: UNK (CYCLE 2)
     Route: 042
     Dates: start: 20221101
  4. VYVGART [Suspect]
     Active Substance: EFGARTIGIMOD ALFA-FCAB
     Dosage: 800 MG (CYCLE 5)
     Route: 042
     Dates: start: 20221229
  5. VYVGART [Suspect]
     Active Substance: EFGARTIGIMOD ALFA-FCAB
     Dosage: UNK
     Route: 042

REACTIONS (9)
  - Thymectomy [Unknown]
  - Immunodeficiency [Unknown]
  - Headache [Recovered/Resolved]
  - Muscular weakness [Recovered/Resolved]
  - Stress fracture [Unknown]
  - Product dose omission issue [Unknown]
  - Inappropriate schedule of product administration [Not Recovered/Not Resolved]
  - Asthenia [Recovered/Resolved]
  - Asthenia [Unknown]

NARRATIVE: CASE EVENT DATE: 20221023
